FAERS Safety Report 7133121-3 (Version None)
Quarter: 2010Q4

REPORT INFORMATION
  Report Type: 
  Country: None (occurrence: None)
  Receive Date: 20101202
  Receipt Date: 20101127
  Transmission Date: 20110411
  Serious: Yes (Other)
  Sender: FDA-Public Use
  Company Number: US-B.I. PHARMACEUTICALS,INC./RIDGEFIELD-2010-BP-13303BP

PATIENT
  Sex: Female

DRUGS (1)
  1. ZANTAC 150 [Suspect]
     Indication: DYSPEPSIA
     Dosage: 300 MG
     Route: 048
     Dates: start: 20101125

REACTIONS (5)
  - CARDIAC DISORDER [None]
  - CHEST DISCOMFORT [None]
  - COUGH [None]
  - RASH ERYTHEMATOUS [None]
  - RASH PRURITIC [None]
